FAERS Safety Report 14230474 (Version 1)
Quarter: 2017Q4

REPORT INFORMATION
  Report Type: Spontaneous
  Country: US (occurrence: US)
  Receive Date: 20171128
  Receipt Date: 20171128
  Transmission Date: 20180321
  Serious: Yes (Hospitalization, Other)
  Sender: FDA-Public Use
  Company Number: US-JNJFOC-20171132166

PATIENT
  Age: 80 Year
  Sex: Female

DRUGS (16)
  1. PROLIA [Concomitant]
     Active Substance: DENOSUMAB
  2. ATORVASTATIN [Concomitant]
     Active Substance: ATORVASTATIN
  3. ALLOPURINOL. [Concomitant]
     Active Substance: ALLOPURINOL
  4. OMEGA 3 FISH OIL [Concomitant]
     Active Substance: FISH OIL\OMEGA-3 FATTY ACIDS
  5. NEXIUM [Concomitant]
     Active Substance: ESOMEPRAZOLE MAGNESIUM
  6. IMBRUVICA [Suspect]
     Active Substance: IBRUTINIB
     Indication: LEUKAEMIA
     Route: 048
     Dates: start: 20171117
  7. VITAMIN D3 [Concomitant]
     Active Substance: CHOLECALCIFEROL
  8. IMBRUVICA [Suspect]
     Active Substance: IBRUTINIB
     Indication: LEUKAEMIA
     Route: 048
     Dates: start: 20160923, end: 20171113
  9. CALCIUM [Concomitant]
     Active Substance: CALCIUM
  10. MULTIVITAMINS [Concomitant]
     Active Substance: VITAMINS
  11. POLYETHYLENE [Concomitant]
     Active Substance: HIGH DENSITY POLYETHYLENE
  12. COQ10 [Concomitant]
     Active Substance: UBIDECARENONE
  13. LUTEIN [Concomitant]
     Active Substance: LUTEIN
  14. ADVIL [Concomitant]
     Active Substance: IBUPROFEN
  15. EMLA [Concomitant]
     Active Substance: LIDOCAINE\PRILOCAINE
  16. ASPIRIN. [Concomitant]
     Active Substance: ASPIRIN

REACTIONS (2)
  - Nervous system disorder [Unknown]
  - Neoplasm [Unknown]

NARRATIVE: CASE EVENT DATE: 20171115
